FAERS Safety Report 20568930 (Version 4)
Quarter: 2022Q2

REPORT INFORMATION
  Report Type: Report from Study
  Country: NL (occurrence: NL)
  Receive Date: 20220308
  Receipt Date: 20220603
  Transmission Date: 20220721
  Serious: Yes (Hospitalization, Other)
  Sender: FDA-Public Use
  Company Number: NL-GILEAD-2022-0572659

PATIENT
  Sex: Male
  Weight: 92 kg

DRUGS (17)
  1. BREXUCABTAGENE AUTOLEUCEL [Suspect]
     Active Substance: BREXUCABTAGENE AUTOLEUCEL
     Indication: Mantle cell lymphoma
     Dosage: UNK
     Route: 042
     Dates: start: 20201110, end: 20201110
  2. BENDAMUSTINE [Concomitant]
     Active Substance: BENDAMUSTINE
     Indication: Disease progression
     Dosage: UNK
     Route: 065
     Dates: start: 20220430
  3. CYTARABINE [Concomitant]
     Active Substance: CYTARABINE
     Indication: Disease progression
     Dosage: UNK
     Route: 065
     Dates: start: 20220430
  4. SULFAMETHOXAZOLE\TRIMETHOPRIM [Concomitant]
     Active Substance: SULFAMETHOXAZOLE\TRIMETHOPRIM
     Dosage: UNK
     Dates: start: 20210518
  5. FOLIC ACID [Concomitant]
     Active Substance: FOLIC ACID
     Dosage: UNK
     Dates: start: 20210622
  6. FILGRASTIM [Concomitant]
     Active Substance: FILGRASTIM
     Dosage: UNK
     Dates: start: 20211116
  7. VALACYCLOVIR HYDROCHLORIDE [Concomitant]
     Active Substance: VALACYCLOVIR HYDROCHLORIDE
     Dosage: UNK
     Dates: start: 20211213
  8. PANTOPRAZOLE [Concomitant]
     Active Substance: PANTOPRAZOLE
     Dosage: 40 MG, BID
     Dates: start: 20220103
  9. OXYCODONE [Concomitant]
     Active Substance: OXYCODONE
     Indication: Pain
     Dosage: UNK
     Dates: start: 20220103
  10. CLOPIDOGREL [Concomitant]
     Active Substance: CLOPIDOGREL BISULFATE
     Dosage: UNK
     Dates: start: 20220103
  11. GENTAMICIN [Concomitant]
     Active Substance: GENTAMICIN
     Dosage: 640 MG, ONCE
     Route: 042
     Dates: start: 20220512, end: 20220512
  12. CEFTRIAXONE [Concomitant]
     Active Substance: CEFTRIAXONE
     Dosage: 2000 MG, QD
     Route: 042
     Dates: start: 20220512, end: 20220514
  13. ACETAMINOPHEN [Concomitant]
     Active Substance: ACETAMINOPHEN
     Dosage: 1000 MG, QID
     Route: 048
     Dates: start: 20220513, end: 20220518
  14. ACETAMINOPHEN [Concomitant]
     Active Substance: ACETAMINOPHEN
     Dosage: 1000 MG, QID
     Route: 048
     Dates: start: 20220514, end: 20220514
  15. FLUCONAZOLE [Concomitant]
     Active Substance: FLUCONAZOLE
     Dosage: 200 MG, ONCE
     Route: 042
     Dates: start: 20220514, end: 20220514
  16. FLUCONAZOLE [Concomitant]
     Active Substance: FLUCONAZOLE
     Dosage: 100 MG, ONCE
     Route: 048
     Dates: start: 20220515, end: 20220518
  17. POTASSIUM CHLORIDE [Concomitant]
     Active Substance: POTASSIUM CHLORIDE
     Dosage: 30 MG, ONCE
     Route: 048
     Dates: start: 20220516, end: 20220516

REACTIONS (17)
  - Peripheral artery aneurysm [Recovered/Resolved]
  - Mantle cell lymphoma [Not Recovered/Not Resolved]
  - Pain in extremity [Recovered/Resolved]
  - Paresis [Unknown]
  - Muscle spasms [Unknown]
  - Paraesthesia [Unknown]
  - Oedema peripheral [Not Recovered/Not Resolved]
  - Actinic keratosis [Not Recovered/Not Resolved]
  - Dyspnoea [Not Recovered/Not Resolved]
  - Pancytopenia [Recovered/Resolved]
  - Renal failure [Not Recovered/Not Resolved]
  - Febrile neutropenia [Recovered/Resolved]
  - Pancytopenia [Recovered/Resolved]
  - Odynophagia [Not Recovered/Not Resolved]
  - Chest pain [Recovered/Resolved]
  - Arthralgia [Not Recovered/Not Resolved]
  - Fatigue [Unknown]

NARRATIVE: CASE EVENT DATE: 20211221
